FAERS Safety Report 7964370-X (Version None)
Quarter: 2011Q4

REPORT INFORMATION
  Report Type: 
  Country: None (occurrence: None)
  Receive Date: 20111208
  Receipt Date: 20111205
  Transmission Date: 20120403
  Serious: Yes (Other)
  Sender: FDA-Public Use
  Company Number: FR-PFIZER INC-2011295880

PATIENT

DRUGS (1)
  1. XALATAN [Suspect]

REACTIONS (1)
  - APHONIA [None]
